FAERS Safety Report 7525632-3 (Version None)
Quarter: 2011Q2

REPORT INFORMATION
  Report Type: 
  Country: None (occurrence: None)
  Receive Date: 20110606
  Receipt Date: 20110524
  Transmission Date: 20111010
  Serious: Yes (Death, Hospitalization, Other)
  Sender: FDA-Public Use
  Company Number: PHHY2010JP60730

PATIENT
  Age: 84 Year
  Sex: Male

DRUGS (5)
  1. LANSOPRAZOLE [Suspect]
     Dosage: 15 MG, DAILY
     Route: 048
     Dates: start: 20100105, end: 20100210
  2. LASIX [Suspect]
     Dosage: 20 MG, DAILY
     Dates: start: 20100121, end: 20100210
  3. GLEEVEC [Suspect]
     Indication: CHRONIC MYELOID LEUKAEMIA
     Dosage: 100 MG, DAILY
     Route: 048
     Dates: start: 20100115, end: 20100210
  4. ALLOPURINOL [Suspect]
     Dosage: 100 MG, UNK
     Route: 048
     Dates: start: 20100104, end: 20100210
  5. ASPIRIN [Suspect]
     Dosage: 100 MG, DAILY
     Route: 048
     Dates: start: 20100121, end: 20100210

REACTIONS (8)
  - JAUNDICE [None]
  - BLOOD ALKALINE PHOSPHATASE INCREASED [None]
  - BLOOD BILIRUBIN INCREASED [None]
  - CHOLESTASIS [None]
  - PNEUMONIA [None]
  - ALANINE AMINOTRANSFERASE INCREASED [None]
  - LIVER DISORDER [None]
  - ANAEMIA [None]
